FAERS Safety Report 12998478 (Version 1)
Quarter: 2016Q4

REPORT INFORMATION
  Report Type: Spontaneous
  Country: US (occurrence: US)
  Receive Date: 20161203
  Receipt Date: 20161203
  Transmission Date: 20170207
  Serious: Yes (Other)
  Sender: FDA-Public Use
  Company Number: None

PATIENT
  Age: 21 Year
  Sex: Female
  Weight: 47.7 kg

DRUGS (1)
  1. SULFAMETHOXAZOLE AND TRIMETHOPRIM DOUBLE STRENGTH [Suspect]
     Active Substance: SULFAMETHOXAZOLE\TRIMETHOPRIM
     Dosage: ?          QUANTITY:14 TABLET(S);?
     Route: 048
     Dates: start: 20161127

REACTIONS (5)
  - Pruritus [None]
  - Burning sensation [None]
  - Vomiting [None]
  - Mood swings [None]
  - Irritability [None]

NARRATIVE: CASE EVENT DATE: 20161127
